FAERS Safety Report 7472599-2 (Version None)
Quarter: 2011Q2

REPORT INFORMATION
  Report Type: 
  Country: None (occurrence: None)
  Receive Date: 20110511
  Receipt Date: 20110502
  Transmission Date: 20111010
  Serious: Yes (Hospitalization)
  Sender: FDA-Public Use
  Company Number: US-ASTRAZENECA-2011SE26093

PATIENT
  Age: 45 Year
  Sex: Female
  Weight: 93.9 kg

DRUGS (7)
  1. SEROQUEL [Suspect]
     Indication: SLEEP DISORDER
     Route: 048
     Dates: start: 20100901
  2. PHENERGAN HCL [Concomitant]
  3. LORTAB [Concomitant]
  4. SEROQUEL [Suspect]
     Indication: DEPRESSION
     Route: 048
     Dates: start: 20100901
  5. NEXIUM [Concomitant]
  6. FLEXERIL [Concomitant]
  7. PRILOSEC [Suspect]
     Route: 048

REACTIONS (9)
  - INSOMNIA [None]
  - VOMITING [None]
  - DRUG DOSE OMISSION [None]
  - ABDOMINAL DISCOMFORT [None]
  - OFF LABEL USE [None]
  - DEHYDRATION [None]
  - DRUG INEFFECTIVE [None]
  - MYOCARDIAL INFARCTION [None]
  - DEPRESSION [None]
